FAERS Safety Report 7203651-4 (Version None)
Quarter: 2010Q4

REPORT INFORMATION
  Report Type: 
  Country: None (occurrence: None)
  Receive Date: 20101230
  Receipt Date: 20101223
  Transmission Date: 20110411
  Serious: Yes (Other)
  Sender: FDA-Public Use
  Company Number: US-SANOFI-AVENTIS-2010SA070125

PATIENT
  Age: 52 Year
  Sex: Female
  Weight: 71.21 kg

DRUGS (6)
  1. LANTUS [Suspect]
     Indication: DIABETES MELLITUS
     Dosage: DOSE:20 UNIT(S)
     Route: 058
     Dates: start: 20101101
  2. METFORMIN [Concomitant]
     Dates: start: 20100102
  3. SIMVASTATIN [Concomitant]
     Dosage: DOSE- 500/20
     Dates: start: 20100102
  4. LISINOPRIL [Concomitant]
     Dates: start: 20101110
  5. LEVOTHYROXINE [Concomitant]
     Indication: HYPOTHYROIDISM
     Dates: start: 20101110
  6. ROPINIROLE [Concomitant]
     Dates: start: 20100102

REACTIONS (2)
  - BLINDNESS [None]
  - VISION BLURRED [None]
